FAERS Safety Report 5689581-8 (Version None)
Quarter: 2008Q1

REPORT INFORMATION
  Report Type: 
  Country: None (occurrence: None)
  Receive Date: 20080328
  Receipt Date: 20080320
  Transmission Date: 20080703
  Serious: Yes (Life-Threatening, Hospitalization)
  Sender: FDA-Public Use
  Company Number: 028-C5013-07100376

PATIENT
  Age: 69 Year
  Sex: Male
  Weight: 89.5 kg

DRUGS (7)
  1. CC-5013 (LENALIDOMIDE) (CAPSULES) [Suspect]
     Indication: MULTIPLE MYELOMA
     Dosage: ORAL
     Route: 048
     Dates: start: 20061229
  2. DEXAMETHASONE TAB [Suspect]
     Indication: MULTIPLE MYELOMA
     Dosage: 40 MG, DAILY FOR 4 DAYS ON DAY BEFORE ADMISSION
     Dates: end: 20071001
  3. PREVACID [Concomitant]
  4. LEVOTHYROXINE SODIUM [Concomitant]
  5. FUROSEMIDE [Concomitant]
  6. METOPROLOL TARTRATE [Concomitant]
  7. DIGOXIN [Concomitant]

REACTIONS (16)
  - ATELECTASIS [None]
  - ATRIAL FIBRILLATION [None]
  - BRONCHOPNEUMONIA [None]
  - CARDIAC FAILURE CONGESTIVE [None]
  - CARDIOMYOPATHY [None]
  - FEBRILE NEUTROPENIA [None]
  - HYPERHIDROSIS [None]
  - HYPOTHYROIDISM [None]
  - OSTEOPOROTIC FRACTURE [None]
  - PANCYTOPENIA [None]
  - PLEURAL EFFUSION [None]
  - PNEUMONIA PNEUMOCOCCAL [None]
  - SEPSIS [None]
  - SPINAL COMPRESSION FRACTURE [None]
  - TYPE 2 DIABETES MELLITUS [None]
  - VENTRICULAR TACHYCARDIA [None]
